FAERS Safety Report 8578441-0 (Version None)
Quarter: 2012Q3

REPORT INFORMATION
  Report Type: 
  Country: None (occurrence: None)
  Receive Date: 20120808
  Receipt Date: 20120802
  Transmission Date: 20120928
  Serious: Yes (Other)
  Sender: FDA-Public Use
  Company Number: DE-JNJFOC-20120612440

PATIENT
  Sex: Male

DRUGS (1)
  1. GOLIMUMAB [Suspect]
     Indication: ANKYLOSING SPONDYLITIS
     Route: 058

REACTIONS (1)
  - SEMINOMA [None]
